FAERS Safety Report 9409295 (Version 2)
Quarter: 2013Q3

REPORT INFORMATION
  Report Type: Spontaneous
  Country: US (occurrence: US)
  Receive Date: 20130719
  Receipt Date: 20130910
  Transmission Date: 20140515
  Serious: No
  Sender: FDA-Public Use
  Company Number: US-PFIZER INC-2013210684

PATIENT
  Age: 70 Year
  Sex: Male
  Weight: 107 kg

DRUGS (11)
  1. LYRICA [Suspect]
     Indication: RESTLESS LEGS SYNDROME
     Dosage: 100 MG, 3X/DAY
     Dates: start: 20130708, end: 201307
  2. LYRICA [Suspect]
     Dosage: 150 MG, 3X/DAY
     Dates: start: 201307
  3. LYRICA [Suspect]
     Dosage: 50 MG, UNK
  4. NEURONTIN [Suspect]
     Indication: RESTLESS LEGS SYNDROME
     Dosage: UNK
  5. GABAPENTIN [Suspect]
     Indication: RESTLESS LEGS SYNDROME
     Dosage: 300 MG, 3X/DAY
  6. GABAPENTIN [Suspect]
     Dosage: 800 MG, 3X/DAY (TAKING TWO 400 MG PILLS AT A TIME)
  7. ROPINIROLE HYDROCHLORIDE [Suspect]
     Indication: RESTLESS LEGS SYNDROME
     Dosage: UNK
     Dates: start: 2013
  8. PRAMIPEXOLE [Suspect]
     Indication: RESTLESS LEGS SYNDROME
     Dosage: UNK
     Dates: start: 2013
  9. REQUIP [Suspect]
     Indication: RESTLESS LEGS SYNDROME
     Dosage: UNK
     Dates: start: 2013
  10. BACLOFEN [Suspect]
     Indication: RESTLESS LEGS SYNDROME
     Dosage: 10 MG, UNK
     Dates: start: 2013
  11. SIMVASTATIN [Concomitant]
     Indication: BLOOD CHOLESTEROL INCREASED
     Dosage: 40 MG, 1X/DAY

REACTIONS (4)
  - Off label use [Unknown]
  - Blood glucose increased [Unknown]
  - Condition aggravated [Unknown]
  - Drug ineffective for unapproved indication [Unknown]
